FAERS Safety Report 5125922-8 (Version None)
Quarter: 2006Q3

REPORT INFORMATION
  Report Type: 
  Country: None (occurrence: None)
  Receive Date: 20060811
  Receipt Date: 20060426
  Transmission Date: 20061208
  Serious: No
  Sender: FDA-Public Use
  Company Number: S06-USA-01676-01

PATIENT
  Age: 85 Year
  Sex: Male

DRUGS (3)
  1. NAMENDA [Suspect]
     Indication: CONFUSIONAL STATE
     Dosage: 5 MG QD PO
     Route: 048
     Dates: start: 20060424
  2. SYNTHROID [Concomitant]
  3. PLAVIX [Concomitant]

REACTIONS (1)
  - DIARRHOEA [None]
